FAERS Safety Report 17467289 (Version 2)
Quarter: 2020Q4

REPORT INFORMATION
  Report Type: Spontaneous
  Country: US (occurrence: US)
  Receive Date: 20200227
  Receipt Date: 20201013
  Transmission Date: 20210113
  Serious: No
  Sender: FDA-Public Use
  Company Number: US-PFIZER INC-2015269151

PATIENT
  Age: 75 Year
  Sex: Female
  Weight: 57 kg

DRUGS (5)
  1. CELEBREX [Suspect]
     Active Substance: CELECOXIB
     Indication: OSTEOPOROSIS
  2. CELEBREX [Suspect]
     Active Substance: CELECOXIB
     Indication: FIBROMYALGIA
  3. CELEBREX [Suspect]
     Active Substance: CELECOXIB
     Indication: MYALGIA
     Dosage: 200 MG, 1X/DAY
     Route: 048
  4. CELEBREX [Suspect]
     Active Substance: CELECOXIB
     Indication: PAIN
  5. CELEBREX [Suspect]
     Active Substance: CELECOXIB
     Indication: SCIATICA

REACTIONS (2)
  - Product dispensing error [Unknown]
  - Arthritis [Unknown]

NARRATIVE: CASE EVENT DATE: 201704
